FAERS Safety Report 16316522 (Version 1)
Quarter: 2019Q2

REPORT INFORMATION
  Report Type: Spontaneous
  Country: US (occurrence: US)
  Receive Date: 20190515
  Receipt Date: 20190515
  Transmission Date: 20190711
  Serious: Yes (Hospitalization, Other)
  Sender: FDA-Public Use
  Company Number: US-GILEAD-2019-0407033

PATIENT
  Age: 50 Year
  Sex: Male

DRUGS (17)
  1. ALLOPURINOL. [Concomitant]
     Active Substance: ALLOPURINOL
  2. MULTIVITAMIN + MINERAL [Concomitant]
     Active Substance: MINERALS\VITAMINS
  3. VITAMIN D [VITAMIN D NOS] [Concomitant]
     Active Substance: VITAMIN D NOS
  4. ZINC. [Concomitant]
     Active Substance: ZINC
  5. EMTRICITABINE;TENOFOVIR [Concomitant]
     Active Substance: EMTRICITABINE\TENOFOVIR
  6. SPIRONOLACTONE. [Concomitant]
     Active Substance: SPIRONOLACTONE
  7. LACTULOSE. [Concomitant]
     Active Substance: LACTULOSE
  8. NITROFURANTOIN. [Concomitant]
     Active Substance: NITROFURANTOIN
  9. SOVALDI [Suspect]
     Active Substance: SOFOSBUVIR
     Indication: HEPATITIS C
     Dosage: 400 MG, QD
     Route: 048
     Dates: start: 20140115, end: 20140702
  10. OMEPRAZOLE. [Concomitant]
     Active Substance: OMEPRAZOLE
  11. BUMETANIDE. [Concomitant]
     Active Substance: BUMETANIDE
  12. RIBAVIRIN. [Suspect]
     Active Substance: RIBAVIRIN
     Indication: HEPATITIS C
     Dosage: 1000 MG, QD
     Route: 048
     Dates: start: 20140115, end: 20140702
  13. FACTOR VIII (ANTIHAEMOPHILIC FACTOR) [Concomitant]
     Active Substance: ANTIHEMOPHILIC FACTOR HUMAN
  14. FUROSEMIDE. [Concomitant]
     Active Substance: FUROSEMIDE
  15. TRAMADOL. [Concomitant]
     Active Substance: TRAMADOL
  16. RALTEGRAVIR. [Concomitant]
     Active Substance: RALTEGRAVIR
  17. RIFAXIMIN. [Concomitant]
     Active Substance: RIFAXIMIN

REACTIONS (12)
  - Procedural complication [Unknown]
  - Encephalopathy [Unknown]
  - Atrial fibrillation [Unknown]
  - Fatigue [Unknown]
  - Hyperkalaemia [Unknown]
  - Liver transplant [Unknown]
  - Dialysis [Unknown]
  - Urine analysis abnormal [Unknown]
  - Cardiac arrest [Unknown]
  - Cardiac aneurysm [Unknown]
  - Acute kidney injury [Unknown]
  - Lactobacillus test positive [Unknown]
